FAERS Safety Report 6694331-2 (Version None)
Quarter: 2010Q2

REPORT INFORMATION
  Report Type: 
  Country: None (occurrence: None)
  Receive Date: 20100423
  Receipt Date: 20100412
  Transmission Date: 20101027
  Serious: Yes (Death, Hospitalization)
  Sender: FDA-Public Use
  Company Number: JP-PFIZER INC-2009193526

PATIENT
  Age: 69 Year
  Sex: Female
  Weight: 53.1 kg

DRUGS (13)
  1. SUNITINIB MALATE [Suspect]
     Indication: RENAL CELL CARCINOMA
     Dosage: 37.5 MG, 1X/DAY
     Route: 048
     Dates: start: 20081021, end: 20090810
  2. HYPEN [Concomitant]
     Dosage: UNK
     Route: 048
     Dates: start: 20081015
  3. AMLODIN [Concomitant]
     Dosage: UNK
     Route: 048
     Dates: start: 20080118
  4. VALSARTAN [Concomitant]
     Dosage: UNK
     Route: 048
     Dates: start: 20081028
  5. UREPEARL [Concomitant]
     Dosage: UNK
     Dates: start: 20081029, end: 20081202
  6. CONIEL [Concomitant]
     Dosage: UNK
     Route: 048
     Dates: start: 20081031, end: 20081216
  7. THYRADIN S [Concomitant]
     Dosage: UNK
     Route: 048
     Dates: start: 20081104
  8. FAMOTIDINE [Concomitant]
     Dosage: UNK
     Route: 048
     Dates: start: 20081105
  9. OXYCODONE HYDROCHLORIDE [Concomitant]
     Dosage: UNK
     Route: 048
     Dates: start: 20081106
  10. PURSENNID [Concomitant]
     Dosage: UNK
     Route: 048
     Dates: start: 20081112
  11. BISOLVON [Concomitant]
     Dosage: UNK
     Route: 048
     Dates: start: 20081112
  12. MAGNESIUM OXIDE [Concomitant]
     Dosage: UNK
     Route: 048
     Dates: start: 20081106
  13. LASIX [Concomitant]
     Dosage: UNK
     Route: 048

REACTIONS (3)
  - DEATH [None]
  - MALAISE [None]
  - RENAL IMPAIRMENT [None]
